FAERS Safety Report 6013723-8 (Version None)
Quarter: 2008Q4

REPORT INFORMATION
  Report Type: 
  Country: None (occurrence: None)
  Receive Date: 20081219
  Receipt Date: 20081219
  Transmission Date: 20090506
  Serious: Yes (Other)
  Sender: FDA-Public Use
  Company Number: A0761084A

PATIENT

DRUGS (1)
  1. LOVAZA [Suspect]

REACTIONS (1)
  - GOUT [None]
